FAERS Safety Report 4922736-6 (Version None)
Quarter: 2006Q1

REPORT INFORMATION
  Report Type: 
  Country: None (occurrence: None)
  Receive Date: 20060224
  Receipt Date: 20051003
  Transmission Date: 20060701
  Serious: Yes (Hospitalization, Other)
  Sender: FDA-Public Use
  Company Number: US-MERCK-0510USA02672

PATIENT
  Age: 72 Year
  Sex: Female
  Weight: 68 kg

DRUGS (1)
  1. VIOXX [Suspect]
     Indication: ARTHRALGIA
     Route: 048
     Dates: start: 19991215, end: 20020423

REACTIONS (4)
  - CARDIOVASCULAR DISORDER [None]
  - EMOTIONAL DISORDER [None]
  - JOINT INJURY [None]
  - MYOCARDIAL INFARCTION [None]
